FAERS Safety Report 15367748 (Version 1)
Quarter: 2018Q3

REPORT INFORMATION
  Report Type: Spontaneous
  Country: DK (occurrence: DK)
  Receive Date: 20180910
  Receipt Date: 20180910
  Transmission Date: 20181010
  Serious: Yes (Hospitalization)
  Sender: FDA-Public Use
  Company Number: PHHY2018DK092426

PATIENT
  Age: 88 Year
  Sex: Female

DRUGS (14)
  1. SPIOLTO RESPIMAT [Concomitant]
     Active Substance: OLODATEROL HYDROCHLORIDE\TIOTROPIUM BROMIDE MONOHYDRATE
     Indication: CHRONIC OBSTRUCTIVE PULMONARY DISEASE
     Dosage: 2 ?G/L, QD (STYRKE: 2,5+2,5 MIKROGRAM)
     Route: 055
     Dates: start: 20171215
  2. PAMOL [Concomitant]
     Active Substance: ACETAMINOPHEN
     Indication: PAIN
     Dosage: 3 G, QD
     Route: 048
     Dates: start: 20180205
  3. PROLIA [Concomitant]
     Active Substance: DENOSUMAB
     Indication: OSTEOPOROSIS
     Dosage: 1 ?G/L, (STYRKE: 60MG/ML)
     Route: 065
     Dates: start: 20180205
  4. METOCLOPRAMIDE ACCORD [Concomitant]
     Active Substance: METOCLOPRAMIDE
     Indication: NAUSEA
     Dosage: 30 MG, QD
     Route: 048
     Dates: start: 20171120
  5. SYMBICORT [Suspect]
     Active Substance: BUDESONIDE\FORMOTEROL FUMARATE DIHYDRATE
     Indication: CHRONIC OBSTRUCTIVE PULMONARY DISEASE
     Dosage: 4 ?G/L, QD (DOSIS: 2 SUG X 2 DAGLIGT, STYRKE: 9 + 320 MIKROGRAM/SUG)
     Route: 055
  6. VIBEDEN [Concomitant]
     Indication: VITAMIN SUPPLEMENTATION
     Dosage: 1 ?G/L, UNK
     Route: 065
     Dates: start: 20130930
  7. TRADOLAN [Concomitant]
     Active Substance: TRAMADOL
     Indication: PAIN
     Route: 048
     Dates: start: 20180111
  8. BRICANYL [Concomitant]
     Active Substance: TERBUTALINE SULFATE
     Indication: CHRONIC OBSTRUCTIVE PULMONARY DISEASE
     Dosage: DOSIS: ET SUG VED BEHOV. STYRKE: 0,5MG/DOSIS
     Route: 055
  9. KALEORID [Concomitant]
     Active Substance: POTASSIUM CHLORIDE
     Indication: MINERAL SUPPLEMENTATION
     Dosage: 750 MG, QD
     Route: 048
  10. UNIKALK BASIC [Concomitant]
     Indication: PRODUCT USED FOR UNKNOWN INDICATION
     Route: 065
  11. KLORZOXAZON [Concomitant]
     Active Substance: CHLORZOXAZONE
     Indication: MYALGIA
     Dosage: 750 MG, QD
     Route: 048
     Dates: start: 20180219
  12. IMDUR [Concomitant]
     Active Substance: ISOSORBIDE MONONITRATE
     Indication: ANGINA PECTORIS
     Dosage: 30 MG, QD
     Route: 048
     Dates: start: 20171205
  13. PANTOPRAZOL [Suspect]
     Active Substance: PANTOPRAZOLE SODIUM
     Indication: GASTROOESOPHAGEAL REFLUX DISEASE
     Dosage: 40 MG, QD (STYRKE: 40 MG)
     Route: 048
     Dates: start: 20171205
  14. FENTANYL B BRAUN [Concomitant]
     Active Substance: FENTANYL
     Indication: PAIN
     Dosage: 1 ?G/L, UNK
     Route: 003
     Dates: start: 20180312

REACTIONS (2)
  - Osteoporosis [Not Recovered/Not Resolved]
  - Hip fracture [Unknown]

NARRATIVE: CASE EVENT DATE: 20180820
